FAERS Safety Report 8436099-5 (Version None)
Quarter: 2012Q2

REPORT INFORMATION
  Report Type: 
  Country: None (occurrence: None)
  Receive Date: 20120614
  Receipt Date: 20120611
  Transmission Date: 20120825
  Serious: Yes (Other)
  Sender: FDA-Public Use
  Company Number: PHHY2012CH050127

PATIENT
  Sex: Female

DRUGS (2)
  1. EXJADE [Suspect]
     Indication: IRON OVERLOAD
     Dosage: 30 MG, DAILY SINCE FIVE YEARS
     Route: 065
  2. DESFERAL [Concomitant]
     Indication: RED BLOOD CELL ABNORMALITY
     Dosage: UNK UKN, UNK
     Route: 065

REACTIONS (2)
  - NECROSIS [None]
  - MYOPATHY [None]
